FAERS Safety Report 23648520 (Version 2)
Quarter: 2024Q1

REPORT INFORMATION
  Report Type: Spontaneous
  Country: IN (occurrence: IN)
  Receive Date: 20240319
  Receipt Date: 20240321
  Transmission Date: 20240410
  Serious: Yes (Disabling)
  Sender: FDA-Public Use
  Company Number: IN-PFIZER INC-PV202400036999

PATIENT
  Age: 52 Year
  Sex: Female

DRUGS (1)
  1. PALBOCICLIB [Suspect]
     Active Substance: PALBOCICLIB
     Dosage: 75 MG
     Route: 048
     Dates: start: 20240205

REACTIONS (1)
  - Platelet count abnormal [Not Recovered/Not Resolved]
